FAERS Safety Report 5468681-1 (Version None)
Quarter: 2007Q3

REPORT INFORMATION
  Report Type: 
  Country: None (occurrence: None)
  Receive Date: 20070926
  Receipt Date: 20070914
  Transmission Date: 20080115
  Serious: Yes (Congenital Anomaly, Other)
  Sender: FDA-Public Use
  Company Number: US-PFIZER INC-2007077497

PATIENT

DRUGS (1)
  1. LYRICA [Suspect]
     Indication: MIGRAINE

REACTIONS (2)
  - CONGENITAL ANOMALY [None]
  - TRANSMISSION OF DRUG VIA SEMEN [None]
